FAERS Safety Report 23441601 (Version 1)
Quarter: 2024Q1

REPORT INFORMATION
  Report Type: Other
  Country: CA (occurrence: None)
  Receive Date: 20240125
  Receipt Date: 20240125
  Transmission Date: 20240410
  Serious: No
  Sender: FDA-Public Use
  Company Number: CA-ROCHE-3498134

PATIENT
  Sex: Female

DRUGS (2)
  1. OCREVUS [Suspect]
     Active Substance: OCRELIZUMAB
     Indication: Relapsing-remitting multiple sclerosis
     Dosage: (CONCENTRATE FOR INTRAVENOUS INFUSION), 300 MG AT DAY 0 AND 14, THEN ON 11/MAR/2022 600 MG EVERY 6 M
     Route: 042
     Dates: start: 202109
  2. ERGOCALCIFEROL [Concomitant]
     Active Substance: ERGOCALCIFEROL

REACTIONS (3)
  - Muscle twitching [Recovered/Resolved]
  - Facial spasm [Recovered/Resolved]
  - COVID-19 [Unknown]
